FAERS Safety Report 17769075 (Version 1)
Quarter: 2020Q2

REPORT INFORMATION
  Report Type: Report from Study
  Country: ES (occurrence: ES)
  Receive Date: 20200512
  Receipt Date: 20200512
  Transmission Date: 20200714
  Serious: Yes (Hospitalization)
  Sender: FDA-Public Use
  Company Number: ES-ACCORD-181556

PATIENT
  Age: 87 Year
  Sex: Male

DRUGS (6)
  1. TRAZODONE [Interacting]
     Active Substance: TRAZODONE HYDROCHLORIDE
     Indication: PRODUCT USED FOR UNKNOWN INDICATION
     Dosage: TRAZODONE HYDROCHLORIDE 3160CH
     Route: 048
     Dates: start: 20170701, end: 20170711
  2. FUROSEMIDE. [Concomitant]
     Active Substance: FUROSEMIDE
     Dosage: FUROSEMIDE 1615A
     Route: 048
     Dates: start: 20161020
  3. BISOPROLOL [Concomitant]
     Active Substance: BISOPROLOL
     Indication: ATRIAL FIBRILLATION
     Dosage: BISOPROLOL 2328A
     Route: 048
     Dates: start: 201611, end: 20170711
  4. QUETIAPINE. [Suspect]
     Active Substance: QUETIAPINE
     Indication: PRODUCT USED FOR UNKNOWN INDICATION
     Route: 048
     Dates: start: 20170701, end: 20170711
  5. OMEPRAZOLE. [Concomitant]
     Active Substance: OMEPRAZOLE
     Indication: PROPHYLAXIS AGAINST GASTROINTESTINAL ULCER
     Dosage: OMEPRAZOLE 2141A
     Route: 048
     Dates: start: 2016
  6. ALDOCUMAR [Concomitant]
     Active Substance: WARFARIN SODIUM
     Indication: ATRIAL FIBRILLATION
     Dosage: STRENGTH: 1 MG, 40 TABLETS
     Route: 048
     Dates: start: 201611, end: 20170711

REACTIONS (2)
  - Drug interaction [Unknown]
  - Somnolence [Recovered/Resolved]

NARRATIVE: CASE EVENT DATE: 20170701
